FAERS Safety Report 24081082 (Version 1)
Quarter: 2024Q3

REPORT INFORMATION
  Report Type: Spontaneous
  Country: JP (occurrence: JP)
  Receive Date: 20240711
  Receipt Date: 20240711
  Transmission Date: 20241017
  Serious: No
  Sender: APELLIS PHARMACEUTICALS
  Company Number: JP-BIOVITRUM-2023-JP-019965

PATIENT

DRUGS (1)
  1. EMPAVELI [Suspect]
     Active Substance: PEGCETACOPLAN
     Indication: Paroxysmal nocturnal haemoglobinuria
     Dosage: 1080.000MG BIW
     Route: 058
     Dates: start: 20231121

REACTIONS (11)
  - Menstruation irregular [Unknown]
  - COVID-19 [Recovering/Resolving]
  - Headache [Unknown]
  - Dry skin [Unknown]
  - Discomfort [Recovering/Resolving]
  - Epistaxis [Recovered/Resolved]
  - Injection site discomfort [Unknown]
  - Injection site pain [Unknown]
  - Injection site swelling [Unknown]
  - Insomnia [Unknown]
  - Injection site discolouration [Unknown]

NARRATIVE: CASE EVENT DATE: 20240417
